FAERS Safety Report 14546944 (Version 11)
Quarter: 2019Q2

REPORT INFORMATION
  Report Type: Spontaneous
  Country: US (occurrence: US)
  Receive Date: 20180219
  Receipt Date: 20190415
  Transmission Date: 20190711
  Serious: Yes (Hospitalization, Other)
  Sender: FDA-Public Use
  Company Number: US-PFIZER INC-2018065574

PATIENT
  Age: 67 Year
  Sex: Female
  Weight: 106 kg

DRUGS (3)
  1. IBRANCE [Suspect]
     Active Substance: PALBOCICLIB
     Dosage: 75 MG, CYCLIC, DAILY (D 1-21 Q (EVERY) 28 DAYS)
     Route: 048
     Dates: start: 201805
  2. IBRANCE [Suspect]
     Active Substance: PALBOCICLIB
     Indication: BREAST CANCER METASTATIC
     Dosage: 125 MG, DAILY DAYS 1-21 OF A 28 DAYS CYCLE
     Route: 048
     Dates: start: 20180201, end: 20180315
  3. IBRANCE [Suspect]
     Active Substance: PALBOCICLIB
     Dosage: 100 MG, DAYS 1-21 EVERY 28 DAYS
     Route: 048
     Dates: start: 201803

REACTIONS (20)
  - Dyspepsia [Unknown]
  - Pain in extremity [Unknown]
  - Malaise [Unknown]
  - Urinary tract infection [Unknown]
  - Neutropenia [Unknown]
  - Kidney infection [Unknown]
  - Troponin increased [Unknown]
  - Taste disorder [Unknown]
  - Rash [Recovering/Resolving]
  - Asthenia [Unknown]
  - Type 2 diabetes mellitus [Unknown]
  - White blood cell count decreased [Not Recovered/Not Resolved]
  - Arthralgia [Unknown]
  - Diarrhoea [Not Recovered/Not Resolved]
  - Blood glucose increased [Unknown]
  - Nasopharyngitis [Unknown]
  - Fatigue [Not Recovered/Not Resolved]
  - Cystitis [Unknown]
  - Seasonal allergy [Not Recovered/Not Resolved]
  - Hot flush [Unknown]

NARRATIVE: CASE EVENT DATE: 20180207
